FAERS Safety Report 8019017-3 (Version None)
Quarter: 2012Q1

REPORT INFORMATION
  Report Type: 
  Country: None (occurrence: None)
  Receive Date: 20120103
  Receipt Date: 20111222
  Transmission Date: 20120608
  Serious: Yes (Hospitalization, Other)
  Sender: FDA-Public Use
  Company Number: US-ELI_LILLY_AND_COMPANY-US201112006952

PATIENT
  Age: 90 Year
  Sex: Female

DRUGS (8)
  1. CYMBALTA [Suspect]
     Dosage: 30 MG, QOD
  2. CYMBALTA [Suspect]
     Dosage: 30 MG, QD
  3. CYMBALTA [Suspect]
     Dosage: 60 MG, QD
  4. POTASSIUM [Concomitant]
  5. LASIX [Concomitant]
  6. VITAMIN D [Concomitant]
  7. CYMBALTA [Suspect]
     Indication: DEPRESSION
     Dosage: 30 MG, QD
  8. CYMBALTA [Suspect]
     Dosage: 60 MG, QOD

REACTIONS (21)
  - HOSPITALISATION [None]
  - ANXIETY [None]
  - AGGRESSION [None]
  - SUICIDAL IDEATION [None]
  - ATRIAL FIBRILLATION [None]
  - INSOMNIA [None]
  - CONFUSIONAL STATE [None]
  - FEELING ABNORMAL [None]
  - HEART RATE INCREASED [None]
  - ANGER [None]
  - PALPITATIONS [None]
  - HYPOAESTHESIA [None]
  - NIGHTMARE [None]
  - INCORRECT DOSE ADMINISTERED [None]
  - PANIC ATTACK [None]
  - TREMOR [None]
  - HYPERTENSION [None]
  - NAUSEA [None]
  - CONSTIPATION [None]
  - DIZZINESS [None]
  - MENTAL DISORDER [None]
